FAERS Safety Report 8481940-3 (Version None)
Quarter: 2012Q3

REPORT INFORMATION
  Report Type: 
  Country: None (occurrence: None)
  Receive Date: 20120702
  Receipt Date: 20120625
  Transmission Date: 20120928
  Serious: No
  Sender: FDA-Public Use
  Company Number: US-PFIZER INC-2012153187

PATIENT
  Sex: Female
  Weight: 66.667 kg

DRUGS (10)
  1. VITAMIN D [Concomitant]
     Dosage: UNK, CYCLIC
  2. MOBIC [Concomitant]
     Indication: ARTHRITIS
     Dosage: 15 MG, DAILY
  3. ZANTAC [Concomitant]
     Indication: GASTROOESOPHAGEAL REFLUX DISEASE
     Dosage: 300 MG, DAILY
  4. MOBIC [Concomitant]
     Indication: PAIN
  5. RANITIDINE [Concomitant]
     Indication: ABDOMINAL DISCOMFORT
     Dosage: 0.045 MG, AS NEEDED
  6. CALCIUM [Concomitant]
     Dosage: UNK, 1X/DAY
  7. PREMARIN [Concomitant]
     Indication: HORMONE REPLACEMENT THERAPY
     Dosage: 0.45 MG, DAILY
     Route: 048
  8. PREMARIN [Suspect]
     Indication: VULVOVAGINAL DRYNESS
     Dosage: UNK, DAILY
     Route: 067
     Dates: start: 20110101, end: 20120101
  9. SYNTHROID [Concomitant]
     Dosage: 137 MG, ALTERNATE DAY
  10. SYNTHROID [Concomitant]
     Indication: THYROID DISORDER
     Dosage: 137 UG, DAILY

REACTIONS (1)
  - DRUG INEFFECTIVE [None]
